FAERS Safety Report 9972356 (Version 1)
Quarter: 2014Q1

REPORT INFORMATION
  Report Type: Report from Study
  Country: US (occurrence: US)
  Receive Date: 20140306
  Receipt Date: 20140306
  Transmission Date: 20141002
  Serious: No
  Sender: FDA-Public Use
  Company Number: US-ABBVIE-13P-163-1148720-00

PATIENT
  Age: 55 Year
  Sex: Male

DRUGS (11)
  1. HUMIRA [Suspect]
     Indication: RHEUMATOID ARTHRITIS
     Dates: start: 201209, end: 201303
  2. HUMIRA [Suspect]
     Dates: start: 201307
  3. SULFASALAZINE [Concomitant]
     Indication: PRODUCT USED FOR UNKNOWN INDICATION
  4. ANTI-INFLAMMATORY [Concomitant]
     Indication: PRODUCT USED FOR UNKNOWN INDICATION
  5. METHOTREXATE [Concomitant]
     Indication: PRODUCT USED FOR UNKNOWN INDICATION
     Dosage: 2.5MG, 8 TABS WEEKLY
  6. MIRTAZAPINE [Concomitant]
     Indication: PRODUCT USED FOR UNKNOWN INDICATION
  7. CYMBALTA [Concomitant]
     Indication: PRODUCT USED FOR UNKNOWN INDICATION
  8. FOLIC ACID [Concomitant]
     Indication: PRODUCT USED FOR UNKNOWN INDICATION
  9. VITAMIN D [Concomitant]
     Indication: PRODUCT USED FOR UNKNOWN INDICATION
  10. SUMATRIPTAN [Concomitant]
     Indication: MIGRAINE
  11. PREVACID [Concomitant]
     Indication: GASTRIC DISORDER

REACTIONS (2)
  - Drug ineffective [Not Recovered/Not Resolved]
  - Arthralgia [Not Recovered/Not Resolved]
